FAERS Safety Report 8846283 (Version 1)
Quarter: 2012Q4

REPORT INFORMATION
  Report Type: 
  Country: BR (occurrence: BR)
  Receive Date: 20121018
  Receipt Date: 20121018
  Transmission Date: 20130627
  Serious: Yes (Hospitalization)
  Sender: FDA-Public Use
  Company Number: BR-AMGEN-BRASP2012065960

PATIENT
  Age: 64 Year
  Sex: Female
  Weight: 46 kg

DRUGS (5)
  1. ENBREL [Suspect]
     Indication: RHEUMATOID ARTHRITIS
     Dosage: UNK
  2. NEURONTIN [Concomitant]
     Dosage: UNK UNK, UNK
  3. DIOVAN [Concomitant]
     Dosage: UNK UNK, UNK
  4. CORTISONE [Concomitant]
     Dosage: UNK UNK, UNK
  5. CALCIUM [Concomitant]
     Dosage: UNK UNK, UNK

REACTIONS (3)
  - Lower limb fracture [Unknown]
  - Fall [Unknown]
  - Joint injury [Unknown]
